FAERS Safety Report 10182013 (Version 1)
Quarter: 2014Q2

REPORT INFORMATION
  Report Type: Spontaneous
  Country: US (occurrence: US)
  Receive Date: 20140519
  Receipt Date: 20140519
  Transmission Date: 20141212
  Serious: No
  Sender: FDA-Public Use
  Company Number: US-BAYER-2014-070805

PATIENT
  Age: 30 Year
  Sex: Female
  Weight: 109 kg

DRUGS (2)
  1. ALEVE CAPLET [Suspect]
     Indication: ANALGESIC THERAPY
     Dosage: 1 DF, BID
     Route: 048
     Dates: start: 201404
  2. BAYER ASPIRIN REGIMEN REGULAR 325 MG STRENGTH [Concomitant]
     Dosage: 1 UNK, QD
     Route: 048

REACTIONS (1)
  - Drug ineffective [None]
